FAERS Safety Report 8279328-3 (Version None)
Quarter: 2012Q2

REPORT INFORMATION
  Report Type: 
  Country: None (occurrence: None)
  Receive Date: 20120412
  Receipt Date: 20120206
  Transmission Date: 20120825
  Serious: No
  Sender: FDA-Public Use
  Company Number: US-ASTRAZENECA-2012SE07939

PATIENT
  Age: 63 Year
  Sex: Male
  Weight: 90.7 kg

DRUGS (11)
  1. NEXIUM [Suspect]
     Indication: HIATUS HERNIA
     Route: 048
  2. NEXIUM [Suspect]
     Indication: GASTROOESOPHAGEAL REFLUX DISEASE
     Route: 048
  3. TRADJENTA [Concomitant]
  4. SOLOSPAR FLEXPEN [Concomitant]
  5. NOVOLOG [Concomitant]
  6. LIPITOR [Concomitant]
  7. FLOMAX [Concomitant]
  8. PRANDIN [Concomitant]
  9. ACCUPRIL [Concomitant]
  10. ANTIBIOTICS [Concomitant]
     Indication: FLUID RETENTION
  11. LANTUS [Concomitant]

REACTIONS (5)
  - OFF LABEL USE [None]
  - DIABETES MELLITUS [None]
  - OEDEMA PERIPHERAL [None]
  - WEIGHT INCREASED [None]
  - ADVERSE EVENT [None]
